FAERS Safety Report 17315175 (Version 2)
Quarter: 2020Q2

REPORT INFORMATION
  Report Type: Report from Study
  Country: IT (occurrence: IT)
  Receive Date: 20200124
  Receipt Date: 20200505
  Transmission Date: 20200713
  Serious: Yes (Other)
  Sender: FDA-Public Use
  Company Number: IT-ROCHE-2524836

PATIENT
  Age: 52 Year
  Sex: Female

DRUGS (5)
  1. CLONAZEPAM. [Suspect]
     Active Substance: CLONAZEPAM
     Route: 048
     Dates: start: 20190825
  2. DEPAKIN CHRONO [VALPROATE SODIUM;VALPROIC ACID] [Concomitant]
     Active Substance: VALPROIC ACID
     Route: 065
  3. CLOZAPINE. [Concomitant]
     Active Substance: CLOZAPINE
     Route: 048
  4. NEURONTIN [Concomitant]
     Active Substance: GABAPENTIN
     Route: 048
  5. CLONAZEPAM. [Suspect]
     Active Substance: CLONAZEPAM
     Indication: INSOMNIA
     Route: 048
     Dates: start: 20190825

REACTIONS (4)
  - Somnolence [Recovered/Resolved]
  - Drug abuse [Recovered/Resolved]
  - Speech disorder [Recovered/Resolved]
  - Toxicity to various agents [Recovered/Resolved]

NARRATIVE: CASE EVENT DATE: 20190825
